FAERS Safety Report 23396958 (Version 1)
Quarter: 2024Q1

REPORT INFORMATION
  Report Type: Spontaneous
  Country: GB (occurrence: GB)
  Receive Date: 20240112
  Receipt Date: 20240112
  Transmission Date: 20240410
  Serious: Yes (Life-Threatening, Hospitalization, Disabling, Other)
  Sender: FDA-Public Use
  Company Number: None

PATIENT
  Age: 56 Year
  Sex: Male
  Weight: 100 kg

DRUGS (7)
  1. ARIPIPRAZOLE [Suspect]
     Active Substance: ARIPIPRAZOLE
     Indication: Psychotic disorder
     Dosage: 5 MG (FOR 20 YEARS INITIALLY)
     Route: 065
     Dates: start: 20070601
  2. ARIPIPRAZOLE [Suspect]
     Active Substance: ARIPIPRAZOLE
     Dosage: 10 MG (FROM ONE YEAR)
     Route: 065
     Dates: start: 2023
  3. DAPAGLIFLOZIN [Concomitant]
     Active Substance: DAPAGLIFLOZIN
     Indication: Diabetes mellitus
     Dosage: UNK
     Route: 065
     Dates: start: 2022
  4. GLICLAZIDE [Concomitant]
     Active Substance: GLICLAZIDE
     Indication: Diabetes mellitus
     Dosage: UNK
     Route: 065
     Dates: start: 2015
  5. LOSARTAN [Concomitant]
     Active Substance: LOSARTAN
     Indication: Hypertension
     Dosage: UNK
     Route: 065
     Dates: start: 2022
  6. METFORMIN [Concomitant]
     Active Substance: METFORMIN HYDROCHLORIDE
     Indication: Diabetes mellitus
     Dosage: UNK
     Route: 065
     Dates: start: 2000
  7. DILTIAZEM HYDROCHLORIDE [Concomitant]
     Active Substance: DILTIAZEM HYDROCHLORIDE
     Indication: Hypertension
     Dosage: UNK
     Route: 065
     Dates: start: 2015

REACTIONS (7)
  - Narcolepsy [Recovered/Resolved]
  - Myocardial infarction [Recovered/Resolved with Sequelae]
  - Dyspnoea [Not Recovered/Not Resolved]
  - Gambling disorder [Recovered/Resolved]
  - Pruritus [Not Recovered/Not Resolved]
  - Sleep disorder [Unknown]
  - Product use in unapproved indication [Unknown]

NARRATIVE: CASE EVENT DATE: 20070601
